FAERS Safety Report 8902408 (Version 1)
Quarter: 2012Q4

REPORT INFORMATION
  Report Type: Report from Study
  Country: CA (occurrence: CA)
  Receive Date: 20121112
  Receipt Date: 20121112
  Transmission Date: 20130627
  Serious: Yes (Hospitalization, Other)
  Sender: FDA-Public Use
  Company Number: CA-JNJFOC-20120804947

PATIENT
  Age: 67 Year
  Sex: Female
  Weight: 63.6 kg

DRUGS (4)
  1. REMICADE [Suspect]
     Indication: COLITIS ULCERATIVE
     Route: 042
     Dates: start: 20110816
  2. ASACOL [Concomitant]
     Route: 065
  3. LOSEC [Concomitant]
     Route: 065
  4. ALL OTHER THERAPEUTIC PRODUCTS [Concomitant]
     Indication: DEPRESSION
     Route: 065

REACTIONS (1)
  - Exostosis [Recovering/Resolving]
